FAERS Safety Report 18192462 (Version 2)
Quarter: 2020Q3

REPORT INFORMATION
  Report Type: Spontaneous
  Country: US (occurrence: US)
  Receive Date: 20200825
  Receipt Date: 20200908
  Transmission Date: 20201103
  Serious: Yes (Other)
  Sender: FDA-Public Use
  Company Number: US-BAYER-2020-176214

PATIENT
  Age: 31 Year
  Sex: Female

DRUGS (3)
  1. MIRENA [Suspect]
     Active Substance: LEVONORGESTREL
     Indication: CONTRACEPTION
     Dosage: 20 ?G PER DAY CONTINUOUSLY
     Route: 015
     Dates: start: 201904, end: 20200624
  2. TERCONAZOLE. [Concomitant]
     Active Substance: TERCONAZOLE
     Dosage: UNK
     Route: 067
     Dates: start: 20190725
  3. AMPICILLIN [Concomitant]
     Active Substance: AMPICILLIN
     Route: 048

REACTIONS (5)
  - Device dislocation [Recovered/Resolved]
  - Abdominal pain lower [None]
  - Haemorrhagic ovarian cyst [None]
  - Genital haemorrhage [Recovered/Resolved]
  - Ovarian cyst ruptured [None]

NARRATIVE: CASE EVENT DATE: 20200510
